FAERS Safety Report 6348986-2 (Version None)
Quarter: 2009Q3

REPORT INFORMATION
  Report Type: 
  Country: None (occurrence: None)
  Receive Date: 20090911
  Receipt Date: 20090903
  Transmission Date: 20100115
  Serious: Yes (Hospitalization)
  Sender: FDA-Public Use
  Company Number: TN-AVENTIS-200919935GDDC

PATIENT
  Age: 66 Year
  Sex: Male
  Weight: 58 kg

DRUGS (5)
  1. LANTUS [Suspect]
     Route: 058
     Dates: start: 20081201
  2. APIDRA [Concomitant]
  3. FENOFIBRATE [Concomitant]
  4. COAPROVEL [Concomitant]
     Dosage: DOSE QUANTITY: 150
  5. ASPIRIN [Concomitant]
     Dosage: DOSE QUANTITY: 160

REACTIONS (2)
  - ATRIAL FIBRILLATION [None]
  - HYPOGLYCAEMIC COMA [None]
